FAERS Safety Report 7592297-4 (Version None)
Quarter: 2011Q3

REPORT INFORMATION
  Report Type: 
  Country: None (occurrence: None)
  Receive Date: 20110706
  Receipt Date: 20110624
  Transmission Date: 20111222
  Serious: Yes (Other)
  Sender: FDA-Public Use
  Company Number: IN-BRISTOL-MYERS SQUIBB COMPANY-15805609

PATIENT
  Age: 70 Year
  Sex: Male

DRUGS (12)
  1. STALTOR [Concomitant]
     Dates: start: 20090221, end: 20110602
  2. UDILIV [Concomitant]
     Dosage: TABS
     Dates: start: 20110602
  3. VITAMIN TAB [Concomitant]
  4. BLINDED: SAXAGLIPTIN [Suspect]
     Indication: TYPE 2 DIABETES MELLITUS
     Dates: start: 20101214
  5. OLMESARTAN MEDOXOMIL [Concomitant]
     Dosage: OLMY TABS
     Dates: start: 20100618
  6. GLIMEPIRIDE [Suspect]
     Indication: TYPE 2 DIABETES MELLITUS
     Dosage: TABS
     Dates: start: 20100416, end: 20110602
  7. METFORMIN HCL [Suspect]
     Indication: TYPE 2 DIABETES MELLITUS
     Dates: start: 20100416, end: 20110602
  8. INSULIN [Concomitant]
     Dosage: 1DF:20 UNITS INSULIN INJ 30/70
     Dates: start: 20110602
  9. PLACEBO [Suspect]
     Indication: TYPE 2 DIABETES MELLITUS
     Dates: start: 20101214
  10. CLOPITAB [Concomitant]
     Dosage: TABS
     Dates: start: 20090221, end: 20110602
  11. ZINC [Concomitant]
  12. AMLOPRES [Concomitant]
     Dosage: TAB AMLOPRESS AT 1 DF: 5/50MG
     Dates: start: 20090221

REACTIONS (3)
  - HEPATITIS [None]
  - CHOLECYSTITIS [None]
  - PANCREATITIS [None]
